FAERS Safety Report 19295482 (Version 2)
Quarter: 2022Q2

REPORT INFORMATION
  Report Type: Spontaneous
  Country: CA (occurrence: CA)
  Receive Date: 20210524
  Receipt Date: 20220616
  Transmission Date: 20220721
  Serious: Yes (Life-Threatening, Hospitalization, Other)
  Sender: FDA-Public Use
  Company Number: CA-GLAXOSMITHKLINE-CA2020GSK245504

PATIENT

DRUGS (17)
  1. ALBUTEROL [Suspect]
     Active Substance: ALBUTEROL
     Indication: Product used for unknown indication
     Dosage: UNK
  2. XYLOMETAZOLINE [Interacting]
     Active Substance: XYLOMETAZOLINE
     Indication: Nasal congestion
     Dosage: UNK, QD
  3. XYLOMETAZOLINE [Interacting]
     Active Substance: XYLOMETAZOLINE
     Indication: Product used for unknown indication
     Dosage: 1 DF
  4. XYLOMETAZOLINE [Interacting]
     Active Substance: XYLOMETAZOLINE
     Dosage: 1 DF
     Route: 045
  5. XYLOMETAZOLINE [Interacting]
     Active Substance: XYLOMETAZOLINE
     Dosage: 1 DF, QD
     Route: 045
  6. XYLOMETAZOLINE [Interacting]
     Active Substance: XYLOMETAZOLINE
     Dosage: UNK, QD
     Route: 061
  7. XYLOMETAZOLINE [Interacting]
     Active Substance: XYLOMETAZOLINE
     Dosage: UNK, QD
     Route: 061
  8. XYLOMETAZOLINE [Interacting]
     Active Substance: XYLOMETAZOLINE
     Dosage: 3 DF, QD
  9. XYLOMETAZOLINE [Interacting]
     Active Substance: XYLOMETAZOLINE
     Dosage: 3 DF, QD
     Route: 061
  10. DULOXETINE [Interacting]
     Active Substance: DULOXETINE
     Indication: Sciatica
     Dosage: 60 MG, QD
     Route: 048
  11. DULOXETINE [Interacting]
     Active Substance: DULOXETINE
     Indication: Product used for unknown indication
     Dosage: 30 MG, QOD
     Route: 048
  12. DULOXETINE [Interacting]
     Active Substance: DULOXETINE
     Dosage: UNK
  13. DULOXETINE [Interacting]
     Active Substance: DULOXETINE
     Dosage: 30 MG, QOD
  14. BUDESONIDE\FORMOTEROL [Suspect]
     Active Substance: BUDESONIDE\FORMOTEROL
     Indication: Asthma
     Dosage: UNK
  15. SYMBICORT [Suspect]
     Active Substance: BUDESONIDE\FORMOTEROL FUMARATE DIHYDRATE
     Indication: Product used for unknown indication
     Dosage: UNK
  16. ALBUTEROL [Concomitant]
     Active Substance: ALBUTEROL
     Indication: Asthma
     Dosage: UNK
  17. BUDESONIDE\FORMOTEROL [Concomitant]
     Active Substance: BUDESONIDE\FORMOTEROL
     Indication: Product used for unknown indication
     Dosage: UNK
     Route: 055

REACTIONS (14)
  - Headache [Recovered/Resolved]
  - Reversible cerebral vasoconstriction syndrome [Recovered/Resolved]
  - Rebound nasal congestion [Recovered/Resolved]
  - Hypertension [Recovered/Resolved]
  - Nasal turbinate hypertrophy [Recovered/Resolved]
  - Nasal mucosal disorder [Unknown]
  - Rhinorrhoea [Recovered/Resolved]
  - Subarachnoid haemorrhage [Recovered/Resolved]
  - Cerebral artery stenosis [Recovered/Resolved]
  - Thunderclap headache [Recovered/Resolved]
  - Allergy to animal [Recovered/Resolved]
  - Nasal septum deviation [Unknown]
  - Drug interaction [Recovered/Resolved]
  - Product use in unapproved indication [Recovered/Resolved]
